FAERS Safety Report 6264011 (Version 2)
Quarter: 2020Q2

REPORT INFORMATION
  Report Type: Spontaneous
  Country: TR (occurrence: TR)
  Receive Date: 20070305
  Receipt Date: 20200413
  Transmission Date: 20200714
  Serious: Yes (Other)
  Sender: FDA-Public Use
  Company Number: GXKR2007TR01909

PATIENT
  Age: 47 Year
  Sex: Female

DRUGS (1)
  1. DICLOFENAC [Suspect]
     Active Substance: DICLOFENAC
     Indication: BACK PAIN
     Dosage: UNK
     Route: 030

REACTIONS (9)
  - Embolia cutis medicamentosa [Recovered/Resolved]
  - Injection site pain [Recovered/Resolved]
  - Pallor [Recovered/Resolved]
  - Rash erythematous [Recovered/Resolved]
  - Injection site scar [Not Recovered/Not Resolved]
  - Skin necrosis [Recovered/Resolved]
  - Injection site cyst [Recovered/Resolved]
  - Induration [Recovered/Resolved]
  - Injection site oedema [Recovered/Resolved]
